FAERS Safety Report 6805719-0 (Version None)
Quarter: 2010Q2

REPORT INFORMATION
  Report Type: 
  Country: None (occurrence: None)
  Receive Date: 20100628
  Receipt Date: 20090208
  Transmission Date: 20101027
  Serious: No
  Sender: FDA-Public Use
  Company Number: US-PFIZER INC-2007091403

PATIENT
  Age: 75 Year
  Sex: Male

DRUGS (3)
  1. XALEASE [Suspect]
  2. XALATAN [Suspect]
  3. TIMOLOL [Concomitant]
     Dosage: UNK

REACTIONS (2)
  - DEVICE INEFFECTIVE [None]
  - MEDICATION ERROR [None]
